FAERS Safety Report 7000358-3 (Version None)
Quarter: 2010Q3

REPORT INFORMATION
  Report Type: 
  Country: None (occurrence: None)
  Receive Date: 20100920
  Receipt Date: 20090814
  Transmission Date: 20110219
  Serious: Yes (Hospitalization)
  Sender: FDA-Public Use
  Company Number: US-ASTRAZENECA-2009UW03127

PATIENT
  Age: 42 Year
  Sex: Male
  Weight: 70.8 kg

DRUGS (10)
  1. SEROQUEL [Suspect]
     Indication: DEPRESSION
     Dosage: 100-900 MG
     Route: 048
     Dates: start: 20020213, end: 20070827
  2. SEROQUEL [Suspect]
     Indication: BIPOLAR DISORDER
     Dosage: 100-900 MG
     Route: 048
     Dates: start: 20020213, end: 20070827
  3. ABILIFY [Concomitant]
     Dates: start: 20070901, end: 20071101
  4. ABILIFY [Concomitant]
     Dates: start: 20081201, end: 20090301
  5. RISPERDAL [Concomitant]
     Dates: start: 20081101
  6. ZYPREXA [Concomitant]
     Dates: start: 20081201, end: 20090301
  7. SYMBYAX [Concomitant]
     Dates: start: 20081201, end: 20090301
  8. ZOLOFT [Concomitant]
  9. PROZAC [Concomitant]
  10. LITHIUM [Concomitant]

REACTIONS (1)
  - PANCREATITIS [None]
